FAERS Safety Report 9656688 (Version 1)
Quarter: 2013Q4

REPORT INFORMATION
  Report Type: Spontaneous
  Country: US (occurrence: US)
  Receive Date: 20131030
  Receipt Date: 20131030
  Transmission Date: 20140711
  Serious: No
  Sender: FDA-Public Use
  Company Number: US-009507513-1310USA012465

PATIENT
  Age: 58 Year
  Sex: Female

DRUGS (1)
  1. EMEND [Suspect]
     Dosage: ON DAY 1: DOSE 120 MG; ON DAY 2 AND 3: DOSE 80 MG
     Route: 048
     Dates: start: 20130830

REACTIONS (4)
  - Underdose [Unknown]
  - Drug dose omission [Unknown]
  - Product physical issue [Unknown]
  - No adverse event [Unknown]
